FAERS Safety Report 6590694-7 (Version None)
Quarter: 2010Q1

REPORT INFORMATION
  Report Type: 
  Country: None (occurrence: None)
  Receive Date: 20100219
  Receipt Date: 20100212
  Transmission Date: 20100710
  Serious: Yes (Other)
  Sender: FDA-Public Use
  Company Number: B0634804A

PATIENT
  Age: 40 Year
  Sex: Male

DRUGS (1)
  1. AUGMENTIN [Suspect]
     Indication: PAIN
     Dosage: 1G TWICE PER DAY
     Route: 065

REACTIONS (2)
  - FAECES DISCOLOURED [None]
  - GASTRITIS [None]
